FAERS Safety Report 9915213 (Version 2)
Quarter: 2015Q4

REPORT INFORMATION
  Report Type: Report from Study
  Country: US (occurrence: US)
  Receive Date: 20140220
  Receipt Date: 20151112
  Transmission Date: 20160305
  Serious: Yes (Other)
  Sender: FDA-Public Use
  Company Number: US-ROCHE-1296054

PATIENT
  Sex: Female

DRUGS (12)
  1. LUCENTIS [Suspect]
     Active Substance: RANIBIZUMAB
     Indication: VITREOUS ADHESIONS
  2. MINITRAN (UNITED STATES) [Concomitant]
     Dosage: APPLY ONE PATCH EVERY DAY REMOVE AT NIGHT 10-12 HR, 0.4MG/HR
     Route: 062
  3. METFORMIN [Concomitant]
     Active Substance: METFORMIN HYDROCHLORIDE
     Dosage: TWO TIMES EVERY DAY WITH MORNING AND EVENING MEALS
     Route: 048
  4. LUCENTIS [Suspect]
     Active Substance: RANIBIZUMAB
     Indication: DIABETIC RETINAL OEDEMA
     Dosage: OS
     Route: 050
     Dates: start: 20130208
  5. LUCENTIS [Suspect]
     Active Substance: RANIBIZUMAB
     Indication: DIABETIC RETINOPATHY
  6. AVASTIN [Suspect]
     Active Substance: BEVACIZUMAB
     Indication: DIABETIC RETINAL OEDEMA
     Dosage: ON 08/JUL/2011, 12/AUG/2011, 07/OCT/2011, 09/DEC/2011, 09/MAR/2012, 18/MAY/2012, 27/JUL/2012, 28/OCT
     Route: 065
     Dates: start: 20110527
  7. AVASTIN [Suspect]
     Active Substance: BEVACIZUMAB
     Indication: DIABETIC RETINOPATHY
  8. TROPICAMIDE. [Concomitant]
     Active Substance: TROPICAMIDE
     Route: 065
  9. AVASTIN [Suspect]
     Active Substance: BEVACIZUMAB
     Indication: VITREOUS ADHESIONS
  10. JANUVIA [Concomitant]
     Active Substance: SITAGLIPTIN PHOSPHATE
  11. PHENYLEPHRINE [Concomitant]
     Active Substance: PHENYLEPHRINE\PHENYLEPHRINE HYDROCHLORIDE
     Route: 065
  12. TETRACAINE. [Concomitant]
     Active Substance: TETRACAINE

REACTIONS (3)
  - Diabetic retinal oedema [Unknown]
  - Cataract nuclear [Unknown]
  - Vitreous detachment [Unknown]
